FAERS Safety Report 24874652 (Version 1)
Quarter: 2025Q1

REPORT INFORMATION
  Report Type: Spontaneous
  Country: US (occurrence: US)
  Receive Date: 20250122
  Receipt Date: 20250122
  Transmission Date: 20250409
  Serious: Yes (Other)
  Sender: IOVANCE BIOTHERAPEUTICS MANUFACTURING LLC
  Company Number: US-IOVANCE BIOTHERAPEUTICS INC.-IOV2025000003

PATIENT

DRUGS (4)
  1. ALDESLEUKIN [Suspect]
     Active Substance: ALDESLEUKIN
     Indication: Product used for unknown indication
     Route: 065
  2. AMTAGVI [Suspect]
     Active Substance: LIFILEUCEL
     Indication: Product used for unknown indication
     Route: 065
     Dates: start: 20241220
  3. CYCLOPHOSPHAMIDE\FLUDARABINE [Suspect]
     Active Substance: CYCLOPHOSPHAMIDE\FLUDARABINE
     Indication: Product used for unknown indication
     Route: 065
  4. FLUDARABINE [Suspect]
     Active Substance: FLUDARABINE PHOSPHATE
     Indication: Product used for unknown indication
     Route: 065

REACTIONS (7)
  - Guillain-Barre syndrome [Unknown]
  - Clostridium difficile infection [Unknown]
  - Renal impairment [Unknown]
  - Haematoma muscle [Unknown]
  - Hypoaesthesia [Unknown]
  - Muscular weakness [Unknown]
  - Confusional state [Unknown]

NARRATIVE: CASE EVENT DATE: 20250105
